FAERS Safety Report 7433678-9 (Version None)
Quarter: 2011Q2

REPORT INFORMATION
  Report Type: 
  Country: None (occurrence: None)
  Receive Date: 20110422
  Receipt Date: 20110408
  Transmission Date: 20111010
  Serious: No
  Sender: FDA-Public Use
  Company Number: AU-GENENTECH-314338

PATIENT
  Sex: Female

DRUGS (4)
  1. IRBESARTAN [Concomitant]
     Indication: HYPERTENSION
  2. LUCENTIS [Suspect]
     Indication: MACULAR DEGENERATION
     Dosage: 0.05 ML, UNK
     Route: 031
     Dates: start: 20090301
  3. THYROXINE [Concomitant]
     Indication: HYPOTHYROIDISM
  4. LUCENTIS [Suspect]
     Dosage: 0.05 ML, UNK
     Route: 031
     Dates: start: 20110207

REACTIONS (1)
  - ABNORMAL LOSS OF WEIGHT [None]
